FAERS Safety Report 8758542 (Version 2)
Quarter: 2013Q1

REPORT INFORMATION
  Report Type: Spontaneous
  Country: BR (occurrence: None)
  Receive Date: 20120816
  Receipt Date: 20130227
  Transmission Date: 20140127
  Serious: Yes (Death, Other)
  Sender: FDA-Public Use
  Company Number: ENTC2012-0358

PATIENT
  Age: 90 Year
  Sex: Male

DRUGS (12)
  1. GALVUS [Suspect]
     Dosage: 1 IN THE MORNIN AND 1 AT NIGHT
     Route: 048
  2. STALEVO [Concomitant]
  3. GLIPAGE XR [Concomitant]
  4. ARADOIS H [Concomitant]
  5. EUTHYROX [Concomitant]
  6. PANTOPRAZOLE [Concomitant]
  7. MIOCARDIL [Concomitant]
  8. OCUVITE LUTEIN [Concomitant]
  9. PAMELOR [Concomitant]
  10. RIVOTRIL [Concomitant]
  11. TIMOLOL [Concomitant]
  12. LASIX [Concomitant]

REACTIONS (4)
  - Acute myeloid leukaemia [None]
  - Multi-organ failure [None]
  - Dementia Alzheimer^s type [None]
  - Parkinson^s disease [None]
